FAERS Safety Report 7503834-X (Version None)
Quarter: 2011Q2

REPORT INFORMATION
  Report Type: 
  Country: None (occurrence: None)
  Receive Date: 20110525
  Receipt Date: 20110518
  Transmission Date: 20111010
  Serious: Yes (Hospitalization, Other)
  Sender: FDA-Public Use
  Company Number: US-MERCK-1105USA02911

PATIENT
  Age: 51 Year
  Sex: Female

DRUGS (11)
  1. NEURONTIN [Concomitant]
     Route: 065
  2. SYNTHROID [Concomitant]
     Route: 065
  3. LEVEMIR [Concomitant]
     Route: 065
  4. PAXIL [Concomitant]
     Route: 065
  5. LISINOPRIL [Concomitant]
     Route: 065
  6. JANUVIA [Suspect]
     Indication: TYPE 2 DIABETES MELLITUS
     Route: 048
     Dates: start: 20090901, end: 20100818
  7. METFORMIN [Concomitant]
     Route: 065
  8. NITROGLYCERIN [Concomitant]
     Route: 065
  9. CORTICOSTEROIDS (UNSPECIFIED) [Concomitant]
     Route: 065
     Dates: start: 20100801
  10. NORCO [Concomitant]
     Route: 065
  11. AMBIEN [Concomitant]
     Route: 065

REACTIONS (3)
  - ARTHROPATHY [None]
  - PANCREATITIS [None]
  - COMPLEX REGIONAL PAIN SYNDROME [None]
